FAERS Safety Report 22165568 (Version 4)
Quarter: 2023Q2

REPORT INFORMATION
  Report Type: Spontaneous
  Country: US (occurrence: US)
  Receive Date: 20230403
  Receipt Date: 20230529
  Transmission Date: 20230722
  Serious: No
  Sender: FDA-Public Use
  Company Number: US-AIMMUNE THERAPEUTICS, INC.-2023AIMT00285

PATIENT

DRUGS (4)
  1. PALFORZIA [Suspect]
     Active Substance: PEANUT
     Indication: Food allergy
     Dosage: IDE (0.5-6MG), ONCE
     Route: 048
     Dates: start: 202209, end: 202209
  2. PALFORZIA [Suspect]
     Active Substance: PEANUT
     Dosage: 160 MG, 1X/DAY
     Route: 048
     Dates: start: 20230321, end: 20230402
  3. PALFORZIA [Suspect]
     Active Substance: PEANUT
     Dosage: 160 MG, ONCE, LAST DOSE PRIOR EVENT
     Route: 048
     Dates: start: 20230402, end: 20230402
  4. PALFORZIA [Suspect]
     Active Substance: PEANUT
     Dosage: 160 MG, 1X/DAY, RESTARTED
     Route: 048
     Dates: start: 20230404

REACTIONS (1)
  - Urticaria [Recovered/Resolved]

NARRATIVE: CASE EVENT DATE: 20230402
